FAERS Safety Report 9914063 (Version 1)
Quarter: 2014Q1

REPORT INFORMATION
  Report Type: Spontaneous
  Country: US (occurrence: US)
  Receive Date: 20140220
  Receipt Date: 20140220
  Transmission Date: 20141002
  Serious: No
  Sender: FDA-Public Use
  Company Number: US-B.I. PHARMACEUTICALS,INC./RIDGEFIELD-2014-BI-06869BP

PATIENT
  Sex: Female

DRUGS (18)
  1. SPIRIVA [Suspect]
     Indication: CHRONIC OBSTRUCTIVE PULMONARY DISEASE
     Dosage: 10 MG
  2. XANAX [Concomitant]
  3. ALLOPURINOL [Concomitant]
     Dosage: 100 MG
  4. NEXIUM [Concomitant]
     Dosage: 40 MG
  5. DUONEB [Concomitant]
  6. ADVAIR [Concomitant]
     Dosage: DOSE PER APPLICATION:500/50 DAILY DOSE 1000/100
  7. LASIX [Concomitant]
     Dosage: 40 MG
  8. FLONASE NASAL SPRAY [Concomitant]
     Dosage: FORMULATION: NASAL SPRAY
  9. AZITHROMYCIN [Concomitant]
     Dosage: 107.1429 MG
  10. ALENDRONATE [Concomitant]
     Dosage: 10 MG
  11. LIDOCAINE PATCH [Concomitant]
  12. IMDUR [Concomitant]
     Dosage: 30 MG
  13. ZOLOFT [Concomitant]
     Dosage: 25 MG
  14. CRESTOR [Concomitant]
     Dosage: 40 MG
  15. PLAVIX [Concomitant]
     Dosage: 75 MG
  16. NORVASC [Concomitant]
     Dosage: 10 MG
  17. CALCIUM PLUS VITAMIN D [Concomitant]
  18. LISINOPRIL [Concomitant]
     Dosage: 10 MG

REACTIONS (6)
  - Wheezing [Unknown]
  - Sinus disorder [Unknown]
  - Asthma [Unknown]
  - Dyspnoea exertional [Unknown]
  - Cough [Unknown]
  - Dyspnoea [Unknown]
